FAERS Safety Report 18314168 (Version 1)
Quarter: 2020Q3

REPORT INFORMATION
  Report Type: Spontaneous
  Country: CN (occurrence: CN)
  Receive Date: 20200925
  Receipt Date: 20200925
  Transmission Date: 20201103
  Serious: Yes (Other)
  Sender: FDA-Public Use
  Company Number: CN-PFIZER INC-2020363590

PATIENT
  Age: 18 Year
  Sex: Male

DRUGS (2)
  1. CYTOSAR [Suspect]
     Active Substance: CYTARABINE
     Indication: CHEMOTHERAPY
     Dosage: 190 MG, 1X/DAY (FOR DAY1 TO DAY7)
     Route: 041
     Dates: start: 20200718, end: 20200725
  2. PIRARUBICIN [Suspect]
     Active Substance: PIRARUBICIN
     Indication: CHEMOTHERAPY
     Dosage: 80 MG, 1X/DAY
     Route: 041
     Dates: start: 20200718, end: 20200721

REACTIONS (2)
  - Myelosuppression [Recovering/Resolving]
  - Thrombin time shortened [Unknown]

NARRATIVE: CASE EVENT DATE: 20200722
